FAERS Safety Report 5839264-6 (Version None)
Quarter: 2008Q3

REPORT INFORMATION
  Report Type: 
  Country: None (occurrence: None)
  Receive Date: 20080808
  Receipt Date: 20080728
  Transmission Date: 20090109
  Serious: Yes (Life-Threatening, Hospitalization)
  Sender: FDA-Public Use
  Company Number: GR-PFIZER INC-2008062125

PATIENT
  Age: 37 Year
  Sex: Male
  Weight: 75 kg

DRUGS (4)
  1. MEDROL [Suspect]
     Indication: IRIDOCYCLITIS
     Dosage: TEXT:24 (UNITS UNKNOWN)
  2. AZATHIOPRINE [Suspect]
     Indication: IRIDOCYCLITIS
     Dosage: DAILY DOSE:150MG
     Route: 048
  3. REMICADE [Suspect]
     Indication: SACROILIITIS
     Route: 042
     Dates: start: 20071220, end: 20080428
  4. FOSAVANCE [Concomitant]
     Indication: OSTEOPOROSIS
     Dosage: TEXT:70 (UNITS UNKNOWN)

REACTIONS (1)
  - DISSEMINATED TUBERCULOSIS [None]
